FAERS Safety Report 19313626 (Version 1)
Quarter: 2021Q2

REPORT INFORMATION
  Report Type: Spontaneous
  Country: US (occurrence: US)
  Receive Date: 20210527
  Receipt Date: 20210527
  Transmission Date: 20210717
  Serious: Yes (Other)
  Sender: FDA-Public Use
  Company Number: US-ABBVIE-21K-163-3919504-00

PATIENT
  Sex: Female
  Weight: 86.18 kg

DRUGS (9)
  1. TYLENOL [Concomitant]
     Active Substance: ACETAMINOPHEN
     Indication: PRODUCT USED FOR UNKNOWN INDICATION
  2. TALTZ [Suspect]
     Active Substance: IXEKIZUMAB
     Indication: PRODUCT USED FOR UNKNOWN INDICATION
     Route: 065
     Dates: start: 202102, end: 2021
  3. CARAFATE [Concomitant]
     Active Substance: SUCRALFATE
     Indication: GASTROINTESTINAL HAEMORRHAGE
  4. LISINOPRIL. [Concomitant]
     Active Substance: LISINOPRIL
     Indication: GLAUCOMA
     Dates: start: 2015
  5. MODERNA COVID?19 VACCINE [Concomitant]
     Active Substance: CX-024414
     Indication: COVID-19 IMMUNISATION
     Route: 030
  6. TITANIUM. [Concomitant]
     Active Substance: TITANIUM
     Indication: ARTHRITIS
  7. HUMIRA [Suspect]
     Active Substance: ADALIMUMAB
     Indication: PSORIATIC ARTHROPATHY
     Route: 058
     Dates: start: 2020, end: 2021
  8. AIMOVIG [Concomitant]
     Active Substance: ERENUMAB-AOOE
     Indication: MIGRAINE
     Route: 058
  9. MODERNA COVID?19 VACCINE [Concomitant]
     Active Substance: CX-024414
     Route: 030

REACTIONS (14)
  - Giant cell arteritis [Unknown]
  - Intentional product misuse [Unknown]
  - Erythema [Unknown]
  - Pain [Unknown]
  - Nail disorder [Unknown]
  - Drug ineffective [Unknown]
  - Skin disorder [Unknown]
  - Skin induration [Unknown]
  - Psoriasis [Unknown]
  - Grip strength decreased [Unknown]
  - Contusion [Unknown]
  - Arthritis [Unknown]
  - Nail psoriasis [Unknown]
  - Laser therapy [Unknown]

NARRATIVE: CASE EVENT DATE: 2020
